FAERS Safety Report 20012467 (Version 3)
Quarter: 2022Q1

REPORT INFORMATION
  Report Type: Spontaneous
  Country: US (occurrence: US)
  Receive Date: 20211029
  Receipt Date: 20220302
  Transmission Date: 20220423
  Serious: Yes (Hospitalization)
  Sender: FDA-Public Use
  Company Number: US-NOVOPROD-859882

PATIENT
  Age: 76 Year
  Sex: Male

DRUGS (4)
  1. NOVOLOG [Suspect]
     Active Substance: INSULIN ASPART
     Indication: Type 1 diabetes mellitus
     Dosage: USUALLY 30-38 UNITS
     Route: 058
     Dates: start: 1998
  2. NOVOLOG [Suspect]
     Active Substance: INSULIN ASPART
     Dosage: ANOTHER 30 UNITS
     Route: 058
  3. NOVOLOG [Suspect]
     Active Substance: INSULIN ASPART
     Dosage: ANOTHER 20 UNITS IN ONE AND A HALF HOUR
     Route: 058
  4. NOVOLOG [Suspect]
     Active Substance: INSULIN ASPART
     Dosage: 40 UNITS
     Route: 058
     Dates: start: 1998

REACTIONS (4)
  - Atrial fibrillation [Recovered/Resolved]
  - Blood glucose increased [Recovered/Resolved]
  - Product quality issue [Recovered/Resolved]
  - Drug ineffective [Recovered/Resolved]

NARRATIVE: CASE EVENT DATE: 20211009
